FAERS Safety Report 11520238 (Version 1)
Quarter: 2015Q3

REPORT INFORMATION
  Report Type: Spontaneous
  Country: US (occurrence: None)
  Receive Date: 20150917
  Receipt Date: 20150917
  Transmission Date: 20151125
  Serious: Yes (Other)
  Sender: FDA-Public Use
  Company Number: None

PATIENT
  Age: 19 Year
  Sex: Female
  Weight: 58.97 kg

DRUGS (1)
  1. BUPRENORPHINE AND NALOXONE TABS 8MG/2M G AMNEAL [Suspect]
     Active Substance: BUPRENORPHINE HYDROCHLORIDE\NALOXONE HYDROCHLORIDE
     Indication: DRUG DEPENDENCE
     Dosage: 8MG  (1/2 AND 1/2 AM/PM)   TAKEN UNDER THE TONGUE
     Dates: start: 20130101, end: 20150916

REACTIONS (2)
  - Dry mouth [None]
  - Dental caries [None]

NARRATIVE: CASE EVENT DATE: 20150916
